FAERS Safety Report 9339734 (Version 4)
Quarter: 2014Q1

REPORT INFORMATION
  Report Type: Report from Study
  Country: NL (occurrence: NL)
  Receive Date: 20130610
  Receipt Date: 20140219
  Transmission Date: 20141002
  Serious: Yes (Hospitalization, Other)
  Sender: FDA-Public Use
  Company Number: PHHY2013NL058107

PATIENT
  Sex: Male

DRUGS (6)
  1. ZOMETA [Suspect]
     Indication: PROSTATE CANCER METASTATIC
     Dosage: 4 MG/100 ML (ONCE EVERY 4 WEEKS)
     Route: 042
     Dates: start: 201301
  2. ZOMETA [Suspect]
     Dosage: 4 MG/100 ML (ONCE EVERY 4 WEEKS)
     Route: 042
     Dates: start: 20130507
  3. ZOMETA [Suspect]
     Dosage: 4 MG/100 ML (ONCE EVERY 4 WEEKS)
     Route: 042
     Dates: start: 20131001
  4. ZOMETA [Suspect]
     Dosage: 4 MG/100 ML (ONCE EVERY 4 WEEKS)
     Route: 042
     Dates: start: 20131030
  5. FENTANYL [Concomitant]
     Dosage: 25 UG, UNK
  6. LUCRIN [Concomitant]
     Dosage: UNK UKN, ONCE EVERY 3 MONTHS

REACTIONS (3)
  - Osteomyelitis [Recovered/Resolved]
  - Tibia fracture [Recovered/Resolved]
  - Limb discomfort [Not Recovered/Not Resolved]
